FAERS Safety Report 18716084 (Version 2)
Quarter: 2021Q4

REPORT INFORMATION
  Report Type: Other
  Country: GB (occurrence: GB)
  Receive Date: 20210108
  Receipt Date: 20211102
  Transmission Date: 20220304
  Serious: Yes (Other)
  Sender: FDA-Public Use
  Company Number: None

PATIENT

DRUGS (15)
  1. GABAPENTIN [Suspect]
     Active Substance: GABAPENTIN
     Indication: Product used for unknown indication
     Dosage: 1 DOSAGE FORM, OD (TAKE ONE DAILY FOR 2-3 DAYS AND THEN ONE TWICE A DAY FOR 2-3 DAYS)
     Route: 065
     Dates: start: 20201207
  2. GABAPENTIN [Suspect]
     Active Substance: GABAPENTIN
     Dosage: 1 DOSAGE FORM, BID (TAKE ONE DAILY FOR 2-3 DAYS AND THEN ONE TWICE A DAY FOR 2-3 DAYS)
     Route: 065
  3. LANSOPRAZOLE [Concomitant]
     Active Substance: LANSOPRAZOLE
     Indication: Product used for unknown indication
     Dosage: 1 DOSAGE FORM, QD
     Route: 065
     Dates: start: 20201102
  4. ANUSOL [BISMUTH HYDROXIDE;BISMUTH SUBGALLATE;BORIC ACID;MYROXYLON BALS [Concomitant]
     Indication: Product used for unknown indication
     Dosage: 2 DOSAGE FORM, PRN
     Route: 065
     Dates: start: 20201007, end: 20201013
  5. INFLUENZA VIRUS VACCINE [Concomitant]
     Active Substance: INFLUENZA VIRUS VACCINE
     Indication: Product used for unknown indication
     Dosage: UNK
     Route: 065
     Dates: start: 20201205, end: 20201206
  6. DULOXETINE [Concomitant]
     Active Substance: DULOXETINE
     Indication: Product used for unknown indication
     Dosage: 1 DOSAGE FORM, QD
     Route: 065
     Dates: start: 20200928, end: 20201026
  7. NAPROXEN [Concomitant]
     Active Substance: NAPROXEN
     Indication: Product used for unknown indication
     Dosage: 4 DOSAGE FORM, PRN WITH FOOD
     Route: 065
     Dates: start: 20201102
  8. ACYCLOVIR [Concomitant]
     Active Substance: ACYCLOVIR
     Indication: Product used for unknown indication
     Dosage: 5 DOSAGE FORM, QD (FOR 5 DAYS)
     Route: 065
     Dates: start: 20201119, end: 20201124
  9. SODIUM ALGINATE [Concomitant]
     Active Substance: SODIUM ALGINATE
     Indication: Product used for unknown indication
     Dosage: 10 MILLILITER, AM
     Route: 065
     Dates: start: 20200721
  10. IBUPROFEN [Concomitant]
     Active Substance: IBUPROFEN
     Indication: Product used for unknown indication
     Dosage: 3 DOSAGE FORM, PRN
     Route: 065
     Dates: start: 20200917, end: 20200924
  11. LATANOPROST [Concomitant]
     Active Substance: LATANOPROST
     Indication: Product used for unknown indication
     Dosage: 1 GTT DROPS, QD (AT NIGHT - LEFT EYE)
     Route: 065
     Dates: start: 20200721
  12. IBUPROFEN [Concomitant]
     Active Substance: IBUPROFEN
     Indication: Product used for unknown indication
     Dosage: 3 DOSAGE FORM, QD (APPLY, TO AFFECTED AREA)
     Route: 065
     Dates: start: 20200917, end: 20201001
  13. DOXYCYCLINE [Concomitant]
     Active Substance: DOXYCYCLINE
     Indication: Product used for unknown indication
     Dosage: 2 DOSAGE FORM, QD
     Route: 065
     Dates: start: 20200928, end: 20201005
  14. HYALURONATE SODIUM [Concomitant]
     Active Substance: HYALURONATE SODIUM
     Indication: Product used for unknown indication
     Dosage: 2 GTT DROPS (ONE DROP EACH EYE)
     Route: 065
     Dates: start: 20200721
  15. AMITRIPTYLINE HYDROCHLORIDE [Concomitant]
     Active Substance: AMITRIPTYLINE HYDROCHLORIDE
     Indication: Product used for unknown indication
     Dosage: 1 DOSAGE FORM, HS
     Route: 065
     Dates: start: 20200921, end: 20201019

REACTIONS (2)
  - Chest discomfort [Unknown]
  - Rash [Recovered/Resolved]

NARRATIVE: CASE EVENT DATE: 20201201
